FAERS Safety Report 25226104 (Version 1)
Quarter: 2025Q2

REPORT INFORMATION
  Report Type: Spontaneous
  Country: US (occurrence: None)
  Receive Date: 20250422
  Receipt Date: 20250422
  Transmission Date: 20250717
  Serious: Yes (Hospitalization)
  Sender: FDA-CTU
  Company Number: None

PATIENT
  Age: 33 Year
  Sex: Female
  Weight: 64.8 kg

DRUGS (1)
  1. KESIMPTA [Suspect]
     Active Substance: OFATUMUMAB
     Indication: Multiple sclerosis
     Dosage: OTHER FREQUENCY : MONTHLY;?
     Route: 058

REACTIONS (3)
  - Immune system disorder [None]
  - Haematemesis [None]
  - Epistaxis [None]
